FAERS Safety Report 9286312 (Version 1)
Quarter: 2013Q2

REPORT INFORMATION
  Report Type: Spontaneous
  Country: US (occurrence: None)
  Receive Date: 20130503
  Receipt Date: 20130503
  Transmission Date: 20140414
  Serious: Yes (Hospitalization)
  Sender: FDA-Public Use
  Company Number: 2013-001344

PATIENT
  Age: 39 Year
  Sex: Male

DRUGS (2)
  1. ASACOL [Suspect]
     Indication: COLITIS ULCERATIVE
     Dosage: 6-8 400 MG DAILY
     Route: 048
     Dates: start: 1993
  2. AMLODIPINE (AMLODIPINE) [Concomitant]

REACTIONS (1)
  - Thyroid cancer [None]
